FAERS Safety Report 11315246 (Version 1)
Quarter: 2015Q3

REPORT INFORMATION
  Report Type: Spontaneous
  Country: US (occurrence: US)
  Receive Date: 20150727
  Receipt Date: 20150727
  Transmission Date: 20151125
  Serious: No
  Sender: FDA-Public Use
  Company Number: US-TAKEDA-2015TUS006737

PATIENT
  Age: 43 Year
  Sex: Female
  Weight: 160 kg

DRUGS (2)
  1. BRINTELLIX [Suspect]
     Active Substance: VORTIOXETINE HYDROBROMIDE
     Indication: MAJOR DEPRESSION
     Dosage: 10 MG SAMPLES ONE TABLET DAILY
     Route: 048
     Dates: start: 20150326
  2. BRINTELLIX [Suspect]
     Active Substance: VORTIOXETINE HYDROBROMIDE
     Dosage: 10 MG SAMPLES TWO TABLETS DAILY
     Route: 048
     Dates: start: 20150507, end: 20150518

REACTIONS (3)
  - Abdominal pain [Recovering/Resolving]
  - Constipation [Recovering/Resolving]
  - Nausea [Recovered/Resolved]

NARRATIVE: CASE EVENT DATE: 20150326
